FAERS Safety Report 14482651 (Version 8)
Quarter: 2018Q4

REPORT INFORMATION
  Report Type: Report from Study
  Country: CN (occurrence: CN)
  Receive Date: 20180203
  Receipt Date: 20181207
  Transmission Date: 20190204
  Serious: Yes (Death, Life-Threatening)
  Sender: FDA-Public Use
  Company Number: CN-AMGEN-CHNCT2018006062

PATIENT
  Age: 24 Year
  Sex: Male
  Weight: 46.5 kg

DRUGS (59)
  1. FILGRASTIM [Concomitant]
     Active Substance: FILGRASTIM
     Dosage: 300 MUG, UNK
     Route: 058
     Dates: start: 20171219, end: 20171230
  2. TAMIFLU [Concomitant]
     Active Substance: OSELTAMIVIR PHOSPHATE
     Dosage: 75 MG, QD
  3. CALCITONIN, SALMON [Concomitant]
     Active Substance: CALCITONIN SALMON
     Dosage: 100 UNK, UNK
     Route: 058
     Dates: start: 20171209, end: 20171210
  4. POTASSIUM CHLORIDE. [Concomitant]
     Active Substance: POTASSIUM CHLORIDE
     Dosage: 10 -100 ML (5-10 %), UNK, 1 G, UNK
     Dates: start: 20171208, end: 20180114
  5. GLUCOSE INJECTION [Concomitant]
     Active Substance: DEXTROSE
     Dosage: 20-500 ML, UNK
     Route: 042
     Dates: start: 20171208, end: 20180114
  6. VANCOMYCIN HYDROCHLORIDE. [Concomitant]
     Active Substance: VANCOMYCIN HYDROCHLORIDE
     Dosage: 50-200 UNK, UNK, 1 G, UNK
     Route: 042
     Dates: start: 20171211, end: 20171231
  7. CREATINE PHOSPHATE SODIUM [Concomitant]
     Active Substance: CREATINE
     Dosage: 0.5-1 G, UNK
     Route: 042
     Dates: start: 20171218, end: 20180106
  8. PANTOPRAZOLE SODIUM. [Concomitant]
     Active Substance: PANTOPRAZOLE SODIUM
     Dosage: 40 MG, UNK
     Route: 042
     Dates: start: 20171230, end: 20180114
  9. PETHIDINE HYDROCHLORIDE [Concomitant]
     Active Substance: MEPERIDINE HYDROCHLORIDE
     Dosage: 0.1 G, UNK
     Route: 030
     Dates: start: 20180103, end: 20180103
  10. CEFOPERAZONE SODIUM AND SULBACTAM SODIUM [Concomitant]
     Active Substance: CEFOPERAZONE SODIUM\SULBACTAM SODIUM
     Dosage: 3 G, UNK
     Route: 042
     Dates: start: 20180106, end: 20180109
  11. GLUTAMINE [Concomitant]
     Active Substance: GLUTAMINE
     Dosage: 20 G, UNK
     Route: 042
     Dates: start: 20171220, end: 20180114
  12. CASPOFUNGIN ACETATE. [Concomitant]
     Active Substance: CASPOFUNGIN ACETATE
     Dosage: 50-70 MG, QD
     Route: 042
     Dates: start: 20171218, end: 20180105
  13. COMPOUND SULFAMETHOXAZOLE [Concomitant]
     Active Substance: SULFAMETHOXAZOLE
     Dosage: 0.96 G, QD
     Route: 048
     Dates: start: 20171210, end: 20180112
  14. HUMAN IMMUNOGLOBULIN [Concomitant]
     Active Substance: HUMAN IMMUNOGLOBULIN G
     Dosage: 5-20 G, QD
     Route: 042
     Dates: start: 20171208, end: 20180114
  15. NOREPINEPHRINE. [Concomitant]
     Active Substance: NOREPINEPHRINE
     Dosage: 2-8 MG, UNK
     Dates: start: 20171215, end: 20180114
  16. MAGNESIUM SULFATE. [Concomitant]
     Active Substance: MAGNESIUM SULFATE
     Dosage: 10 ML, UNK
     Route: 042
     Dates: start: 20171211, end: 20180114
  17. LIDOCAINE. [Concomitant]
     Active Substance: LIDOCAINE
     Dosage: 0.1 G, UNK
     Dates: start: 20171207, end: 20180114
  18. MANNITOL. [Concomitant]
     Active Substance: MANNITOL
     Dosage: 125 ML, UNK
     Route: 042
     Dates: start: 20171220, end: 20171222
  19. RECOMBINANT HUMAN INTERLEUKIN-11 [Concomitant]
     Active Substance: OPRELVEKIN
     Dosage: 1.5 MG, UNK
     Route: 050
     Dates: start: 20171207, end: 20171207
  20. PLASMA [Concomitant]
     Active Substance: HUMAN PLASMA
     Dosage: 200 TO 400 ML, UNK
     Route: 042
     Dates: start: 20180102, end: 20180113
  21. POLYENE PHOSPHATIDYLCHOLINE [Concomitant]
     Active Substance: PHOSPHOLIPID
     Dosage: 10-15 ML, UNK
     Route: 042
     Dates: start: 20180107, end: 20180109
  22. METHOTREXATE. [Concomitant]
     Active Substance: METHOTREXATE
     Dosage: 10 MG, UNK
     Route: 037
     Dates: start: 20171219, end: 20171219
  23. ETIMICIN [Concomitant]
     Active Substance: ETIMICIN SULFATE
     Dosage: 0.2 G, UNK
     Route: 042
     Dates: start: 20171208, end: 20171211
  24. BUFFERIN COLD [Concomitant]
     Dosage: 1 UNK, UNK
     Route: 048
     Dates: start: 20171210, end: 20180109
  25. ETAMSYLATE [Concomitant]
     Active Substance: ETHAMSYLATE
     Dosage: 0.5-1 G, UNK
     Route: 042
     Dates: start: 20171207, end: 20180113
  26. HYDROCHLOROTHIAZIDE. [Concomitant]
     Active Substance: HYDROCHLOROTHIAZIDE
     Dosage: 25 MG, UNK
     Route: 048
     Dates: start: 20171208, end: 20180114
  27. NYSTATIN. [Concomitant]
     Active Substance: NYSTATIN
     Dosage: 50-400 UNK, UNK
     Route: 050
     Dates: start: 20171207, end: 20180106
  28. ZOLEDRONIC ACID [Concomitant]
     Active Substance: ZOLEDRONIC ACID
     Dosage: 4 MG, UNK
     Route: 042
     Dates: start: 20171209, end: 20171209
  29. DEXAMETHASONE ACETATE [Concomitant]
     Active Substance: DEXAMETHASONE ACETATE
     Dosage: 2.5 MG, QD
  30. SODIUM CHLORIDE + GLUCOSE [Concomitant]
     Dosage: 500 ML, UNK
     Route: 042
     Dates: start: 20171209, end: 20171214
  31. LORATADINE. [Concomitant]
     Active Substance: LORATADINE
     Dosage: 10 MG, UNK, 10 MG/M2,
     Route: 048
     Dates: start: 20171207, end: 20180114
  32. FUROSEMIDE. [Concomitant]
     Active Substance: FUROSEMIDE
     Dosage: 10- 20 MG, UNK, 20 ML, UNK, 20 MG/SQ. METER
     Dates: start: 20171208, end: 20180114
  33. TRIMETAZIDINE DIHYDROCHLORIDE [Concomitant]
     Active Substance: TRIMETAZIDINE DIHYDROCHLORIDE
     Dosage: 20 MG, UNK
     Route: 048
     Dates: start: 20171217, end: 20180114
  34. PETHIDINE [Concomitant]
     Active Substance: MEPERIDINE
     Dosage: 0.1 G, UNK
     Route: 030
     Dates: start: 20171231, end: 20180108
  35. PIPERACILLIN AND TAZOBACTAM [Concomitant]
     Active Substance: PIPERACILLIN SODIUM\TAZOBACTAM SODIUM
     Dosage: 4.5 G, UNK
     Route: 042
     Dates: start: 20171216, end: 20180102
  36. ESOMEPRAZOLE MAGNESIUM. [Concomitant]
     Active Substance: ESOMEPRAZOLE MAGNESIUM
     Dosage: 20 MG, UNK
     Route: 048
     Dates: start: 20171208, end: 20180103
  37. RECOMBINANT HUMAN THROMBOPOIETIN [Concomitant]
     Active Substance: THROMBOPOIETIN
     Dosage: 1.5 UNK, UNK
     Route: 058
     Dates: start: 20171218, end: 20180114
  38. ESOMEPRAZOLE SODIUM. [Concomitant]
     Active Substance: ESOMEPRAZOLE SODIUM
     Dosage: 20-80 MG, UNK
     Dates: start: 20171215, end: 20180108
  39. PANTOPRAZOLE [Concomitant]
     Active Substance: PANTOPRAZOLE
     Dosage: 40 MG, UNK
     Route: 048
     Dates: start: 20180105, end: 20180109
  40. COMPOUND SODIUM CHLORIDE [Concomitant]
     Dosage: 500 ML, UNK
     Route: 042
     Dates: start: 20171207, end: 20171207
  41. POTASSIUM PERMANGANATE [Concomitant]
     Active Substance: POTASSIUM PERMANGANATE
     Dosage: 1 G, UNK
     Route: 050
     Dates: start: 20171207, end: 20171207
  42. TIGECYCLINE. [Concomitant]
     Active Substance: TIGECYCLINE
     Dosage: 50 MG-200 MG, UNK, 50 MG Q12H
     Route: 042
     Dates: start: 20180101, end: 20180112
  43. IMIPENEM AND CILASTATIN SODIUM [Concomitant]
     Active Substance: CILASTATIN SODIUM\IMIPENEM
     Dosage: 1 G, UNK
     Route: 042
     Dates: start: 20171207, end: 20171215
  44. FENTANYL. [Concomitant]
     Active Substance: FENTANYL
     Dosage: 4.2 MG, UNK
     Route: 050
     Dates: start: 20171207, end: 20180108
  45. SPIRONOLACTONE. [Concomitant]
     Active Substance: SPIRONOLACTONE
     Dosage: 20 MG, UNK
     Route: 048
     Dates: start: 20171208, end: 20180114
  46. CYTARABINE. [Concomitant]
     Active Substance: CYTARABINE
     Dosage: 0.05 G, UNK
     Route: 037
     Dates: start: 20171219, end: 20171219
  47. TROPISETRON [Concomitant]
     Active Substance: TROPISETRON
     Dosage: 5 MG, UNK
     Route: 042
     Dates: start: 20180101, end: 20180114
  48. SODIUM BICARBONATE. [Concomitant]
     Active Substance: SODIUM BICARBONATE
     Dosage: 5- 250 ML, (5 %) 1 G, UNK
     Dates: start: 20171207, end: 20180114
  49. VORICONAZOLE. [Concomitant]
     Active Substance: VORICONAZOLE
     Dosage: 0.2 G AND 200 MG, UNK,
     Route: 042
     Dates: start: 20171210, end: 20171218
  50. HYDROGEN PEROXIDE. [Concomitant]
     Active Substance: HYDROGEN PEROXIDE
     Dosage: 30 ML, UNK
     Route: 050
     Dates: start: 20171225, end: 20171225
  51. DEXAMETHASONE. [Concomitant]
     Active Substance: DEXAMETHASONE
     Dosage: 2.5 - 20 MG, UNK
     Dates: start: 20171208, end: 20180101
  52. ETIMICIN SULFATE [Concomitant]
     Active Substance: ETIMICIN SULFATE
     Dosage: 0.2 G, UNK
     Route: 042
     Dates: start: 20171209, end: 20171211
  53. ERYTHROCYTES [Concomitant]
     Active Substance: HUMAN RED BLOOD CELL
     Dosage: 2 UNK, UNK
     Route: 042
     Dates: start: 20171209, end: 20180112
  54. BLINATUMOMAB [Suspect]
     Active Substance: BLINATUMOMAB
     Indication: B PRECURSOR TYPE ACUTE LEUKAEMIA
     Dosage: UNK
     Route: 042
     Dates: start: 20171225, end: 20180108
  55. MEROPENEM. [Concomitant]
     Active Substance: MEROPENEM
     Dosage: 1 G, UNK
     Route: 042
     Dates: start: 20171220, end: 20180112
  56. HEPARIN SODIUM. [Concomitant]
     Active Substance: HEPARIN SODIUM
     Dosage: 1.25 UNK, UNK
     Dates: start: 20171208, end: 20180111
  57. VANCOMYCIN [Concomitant]
     Active Substance: VANCOMYCIN
     Dosage: 50-200 UNK, UNK
     Dates: start: 20171212, end: 20180112
  58. SODIUM CHLORIDE. [Concomitant]
     Active Substance: SODIUM CHLORIDE
     Dosage: 10-500 ML, UNK
     Route: 042
     Dates: start: 20171209, end: 20171213
  59. PLATELETS [Concomitant]
     Active Substance: HUMAN PLATELET, ALLOGENIC
     Dosage: 1 UNK, UNK
     Route: 042
     Dates: start: 20171207, end: 20180114

REACTIONS (1)
  - Disseminated intravascular coagulation [Fatal]

NARRATIVE: CASE EVENT DATE: 20180109
